FAERS Safety Report 15644729 (Version 2)
Quarter: 2018Q4

REPORT INFORMATION
  Report Type: Spontaneous
  Country: GB (occurrence: GB)
  Receive Date: 20181121
  Receipt Date: 20181203
  Transmission Date: 20190205
  Serious: Yes (Other)
  Sender: FDA-Public Use
  Company Number: GB-SA-2018SA316933

PATIENT
  Age: 84 Year
  Sex: Male

DRUGS (1)
  1. TAMSULOSIN HYDROCHLORIDE. [Suspect]
     Active Substance: TAMSULOSIN HYDROCHLORIDE
     Indication: BENIGN PROSTATIC HYPERPLASIA
     Dosage: UNK UNK, UNK

REACTIONS (4)
  - Iatrogenic injury [Recovering/Resolving]
  - Angle closure glaucoma [Recovering/Resolving]
  - Iris adhesions [Recovering/Resolving]
  - Floppy iris syndrome [Recovering/Resolving]
